FAERS Safety Report 17364298 (Version 1)
Quarter: 2020Q1

REPORT INFORMATION
  Report Type: Report from Study
  Country: US (occurrence: US)
  Receive Date: 20200204
  Receipt Date: 20200204
  Transmission Date: 20200409
  Serious: No
  Sender: FDA-Public Use
  Company Number: NVSC2020US027202

PATIENT
  Age: 17 Year
  Sex: Female

DRUGS (1)
  1. PIQRAY [Suspect]
     Active Substance: ALPELISIB
     Indication: VASCULAR MALFORMATION
     Dosage: UNK
     Route: 065
     Dates: start: 20190601

REACTIONS (2)
  - Anxiety [Unknown]
  - Depressed mood [Unknown]
